FAERS Safety Report 4464811-9 (Version None)
Quarter: 2004Q4

REPORT INFORMATION
  Report Type: 
  Country: None (occurrence: None)
  Receive Date: 20041004
  Receipt Date: 20030815
  Transmission Date: 20050328
  Serious: No
  Sender: FDA-Public Use
  Company Number: US-GLAXOSMITHKLINE-A0422191A

PATIENT
  Age: 75 Year
  Sex: Male

DRUGS (9)
  1. COREG [Suspect]
     Indication: HYPERTENSION
     Route: 048
     Dates: start: 20030327
  2. ALTACE [Concomitant]
  3. PLAVIX [Concomitant]
  4. ASPIRIN [Concomitant]
  5. LIPITOR [Concomitant]
  6. NITROGLYCERIN [Concomitant]
  7. AMBIEN [Concomitant]
  8. ALLEGRA [Concomitant]
  9. ASPELLIN [Concomitant]

REACTIONS (2)
  - ERECTILE DYSFUNCTION [None]
  - PHARMACEUTICAL PRODUCT COMPLAINT [None]
